FAERS Safety Report 10137134 (Version 2)
Quarter: 2014Q2

REPORT INFORMATION
  Report Type: Report from Study
  Country: US (occurrence: US)
  Receive Date: 20140429
  Receipt Date: 20140429
  Transmission Date: 20141212
  Serious: No
  Sender: FDA-Public Use
  Company Number: US-ABBVIE-14P-163-1205761-00

PATIENT
  Age: 42 Year
  Sex: Male
  Weight: 124.85 kg

DRUGS (1)
  1. ANDROGEL STICK PACK 1.25G [Suspect]
     Indication: PRODUCT USED FOR UNKNOWN INDICATION
     Dosage: 1.25 GRAM PACKET DAILY
     Route: 061
     Dates: start: 20131220, end: 20140224

REACTIONS (3)
  - Rash [Not Recovered/Not Resolved]
  - Depressed mood [Not Recovered/Not Resolved]
  - Rash [Not Recovered/Not Resolved]
